FAERS Safety Report 14079690 (Version 1)
Quarter: 2017Q4

REPORT INFORMATION
  Report Type: Spontaneous
  Country: GB (occurrence: GB)
  Receive Date: 20171012
  Receipt Date: 20171012
  Transmission Date: 20180321
  Serious: Yes (Hospitalization, Other)
  Sender: FDA-Public Use
  Company Number: GB-BAYER-2017-195744

PATIENT

DRUGS (1)
  1. CIPROFLOXACIN. [Suspect]
     Active Substance: CIPROFLOXACIN
     Dosage: 500 MG, BID

REACTIONS (7)
  - Tendon pain [None]
  - Insomnia [None]
  - Dyspnoea [Not Recovered/Not Resolved]
  - Muscle rupture [None]
  - Spinal fracture [None]
  - Burning sensation [None]
  - Mobility decreased [None]
